FAERS Safety Report 5296519-4 (Version None)
Quarter: 2007Q2

REPORT INFORMATION
  Report Type: 
  Country: None (occurrence: None)
  Receive Date: 20070413
  Receipt Date: 20070403
  Transmission Date: 20071010
  Serious: Yes (Hospitalization)
  Sender: FDA-Public Use
  Company Number: FR-GENENTECH-239404

PATIENT
  Age: 41 Year
  Sex: Female

DRUGS (4)
  1. MABTHERA [Suspect]
     Indication: LYMPHOMA
     Dosage: 580 MG, UNK
     Route: 042
     Dates: start: 20070102
  2. CISPLATIN [Suspect]
     Indication: LYMPHOMA
     Dosage: 148 MG, UNK
     Route: 042
     Dates: start: 20070103
  3. DECTANCYL [Suspect]
     Indication: LYMPHOMA
     Dosage: 40 MG, QD
     Route: 042
     Dates: start: 20070102
  4. ARACYTINE [Suspect]
     Indication: LYMPHOMA
     Dosage: 2980 MG, UNK
     Route: 042
     Dates: start: 20070104

REACTIONS (4)
  - BLOOD CULTURE POSITIVE [None]
  - CEREBRAL VENOUS THROMBOSIS [None]
  - GASTROENTERITIS [None]
  - STAPHYLOCOCCAL INFECTION [None]
